FAERS Safety Report 6706622-7 (Version None)
Quarter: 2010Q2

REPORT INFORMATION
  Report Type: 
  Country: None (occurrence: None)
  Receive Date: 20100503
  Receipt Date: 20100426
  Transmission Date: 20101027
  Serious: Yes (Other)
  Sender: FDA-Public Use
  Company Number: RU-ROCHE-698798

PATIENT
  Sex: Male
  Weight: 90 kg

DRUGS (4)
  1. TOCILIZUMAB [Suspect]
     Indication: RHEUMATOID ARTHRITIS
     Dosage: LAST DOSE PRIOR TO SAE 24 MARCH 2010
     Route: 042
     Dates: start: 20091130, end: 20100421
  2. METHOTREXATE [Suspect]
     Indication: RHEUMATOID ARTHRITIS
     Dosage: FORM AND ROUTE PER PROTOCOL
     Route: 048
     Dates: start: 20090307, end: 20100421
  3. DICLOFENAC [Concomitant]
     Dates: start: 20071113
  4. FOLIC ACID [Concomitant]
     Dates: start: 20090310

REACTIONS (1)
  - CENTRAL NERVOUS SYSTEM MASS [None]
